FAERS Safety Report 23844556 (Version 1)
Quarter: 2024Q2

REPORT INFORMATION
  Report Type: Other
  Country: CN (occurrence: None)
  Receive Date: 20240510
  Receipt Date: 20240510
  Transmission Date: 20240716
  Serious: Yes (Death)
  Sender: FDA-Public Use
  Company Number: CN-ROCHE-3560684

PATIENT
  Age: 58 Year
  Sex: Female

DRUGS (7)
  1. BEVACIZUMAB [Suspect]
     Active Substance: BEVACIZUMAB
     Indication: Breast cancer
     Dosage: ON DAY 1
     Route: 065
  2. PACLITAXEL [Suspect]
     Active Substance: PACLITAXEL
     Indication: Breast cancer
     Dosage: ON DAY 1
     Route: 065
  3. CARBOPLATIN [Suspect]
     Active Substance: CARBOPLATIN
     Indication: Breast cancer
     Dosage: ON DAY 1
     Route: 065
  4. FULVESTRANT [Concomitant]
     Active Substance: FULVESTRANT
     Route: 065
     Dates: end: 202109
  5. FULVESTRANT [Concomitant]
     Active Substance: FULVESTRANT
     Route: 030
     Dates: end: 202301
  6. PALBOCICLIB [Concomitant]
     Active Substance: PALBOCICLIB
     Route: 065
  7. LENVATINIB [Concomitant]
     Active Substance: LENVATINIB
     Route: 048

REACTIONS (1)
  - Neoplasm progression [Fatal]
